FAERS Safety Report 16897101 (Version 1)
Quarter: 2019Q4

REPORT INFORMATION
  Report Type: Spontaneous
  Country: US (occurrence: US)
  Receive Date: 20191009
  Receipt Date: 20191009
  Transmission Date: 20200122
  Serious: No
  Sender: FDA-Public Use
  Company Number: US-AUROBINDO-AUR-APL-2019-060217

PATIENT
  Age: 65 Year
  Sex: Female
  Weight: 54 kg

DRUGS (1)
  1. GUAIFENESINANDDEXTROMETHORPHAN1200/60MGEXTENDEDRELEASETABLET OTC [Suspect]
     Active Substance: DEXTROMETHORPHAN\GUAIFENESIN
     Indication: HYPERSENSITIVITY
     Dosage: 1 DOSAGE FORM (JUST TOOK ONE TABLET))
     Route: 065
     Dates: start: 20190904

REACTIONS (1)
  - Insomnia [Recovered/Resolved]

NARRATIVE: CASE EVENT DATE: 20190905
